FAERS Safety Report 17097225 (Version 2)
Quarter: 2019Q4

REPORT INFORMATION
  Report Type: Spontaneous
  Country: IL (occurrence: IL)
  Receive Date: 20191202
  Receipt Date: 20191204
  Transmission Date: 20200122
  Serious: Yes (Death)
  Sender: FDA-Public Use
  Company Number: IL-CLOVIS ONCOLOGY-CLO-2019-002312

PATIENT

DRUGS (1)
  1. RUBRACA [Suspect]
     Active Substance: RUCAPARIB CAMSYLATE
     Indication: OVARIAN CANCER METASTATIC
     Dosage: 600 MG, BID
     Dates: start: 201909, end: 2019

REACTIONS (2)
  - Malaise [Unknown]
  - Ovarian cancer metastatic [Fatal]

NARRATIVE: CASE EVENT DATE: 2019
